FAERS Safety Report 5006964-X (Version None)
Quarter: 2006Q2

REPORT INFORMATION
  Report Type: 
  Country: None (occurrence: None)
  Receive Date: 20060517
  Receipt Date: 20060516
  Transmission Date: 20061013
  Serious: Yes (Other)
  Sender: FDA-Public Use
  Company Number: 220529

PATIENT
  Sex: Female

DRUGS (12)
  1. CATHFLO ACTIVASE [Suspect]
     Indication: CATHETER RELATED COMPLICATION
     Dosage: 2 MG, INTRAVENOUS
     Route: 042
     Dates: start: 20050914, end: 20051212
  2. WARFARIN SODIUM [Concomitant]
  3. CALCIUM CARBONATE [Concomitant]
  4. FERROUS FUMARATE [Concomitant]
  5. CALCITRIOL [Concomitant]
  6. REPLAVITE (CANADA) (MULTIVITAMINS NOS) [Concomitant]
  7. DILANTIN [Concomitant]
  8. ZOCOR [Concomitant]
  9. OMEPRAZOLE [Concomitant]
  10. CLOBAZAM [Concomitant]
  11. DOMPERIDONE [Concomitant]
  12. HEPARIN [Concomitant]

REACTIONS (4)
  - CATHETER RELATED COMPLICATION [None]
  - CONVULSION [None]
  - LOSS OF CONSCIOUSNESS [None]
  - PRURITUS GENERALISED [None]
